FAERS Safety Report 6017520-9 (Version None)
Quarter: 2008Q4

REPORT INFORMATION
  Report Type: 
  Country: None (occurrence: None)
  Receive Date: 20081219
  Receipt Date: 20081204
  Transmission Date: 20090506
  Serious: Yes (Hospitalization)
  Sender: FDA-Public Use
  Company Number: 2008S1021601

PATIENT
  Age: 83 Year
  Sex: Female

DRUGS (11)
  1. MIRTAZAPINE [Suspect]
     Indication: DEPRESSION
     Dosage: 30 MG;DAILY;ORAL
     Route: 048
     Dates: start: 20080616, end: 20080914
  2. OMEPRAZOLE [Suspect]
     Indication: GASTRIC ULCER
     Dosage: 10 MG;DAILY;ORAL
     Route: 048
     Dates: start: 20070815
  3. BETAHISTINE [Concomitant]
  4. CALCICHEW [Concomitant]
  5. ACETAMINOPHEN W/ CODEINE [Concomitant]
  6. COD LIVER OIL [Concomitant]
  7. CONOTRANE [Concomitant]
  8. EVENING PRIMROSE OIL [Concomitant]
  9. FERROUS SULPHATE [Concomitant]
  10. GAVISCON [Concomitant]
  11. SIMVASTATIN [Concomitant]

REACTIONS (3)
  - CONVULSION [None]
  - HEADACHE [None]
  - HYPONATRAEMIA [None]
